FAERS Safety Report 9316196 (Version 2)
Quarter: 2013Q3

REPORT INFORMATION
  Report Type: Spontaneous
  Country: MY (occurrence: MY)
  Receive Date: 20130530
  Receipt Date: 20130705
  Transmission Date: 20140515
  Serious: Yes (Death, Hospitalization)
  Sender: FDA-Public Use
  Company Number: PHHY2013MY035327

PATIENT
  Sex: Female

DRUGS (2)
  1. AFINITOR [Suspect]
     Indication: PANCREATIC NEUROENDOCRINE TUMOUR
     Dosage: 10 MG
     Route: 048
     Dates: start: 201206
  2. AFINITOR [Suspect]
     Dosage: 10 MG
     Route: 048
     Dates: start: 201303

REACTIONS (7)
  - General physical health deterioration [Fatal]
  - Pneumonia [Fatal]
  - Pneumonitis [Not Recovered/Not Resolved]
  - Dyspnoea [Unknown]
  - Pyrexia [Unknown]
  - Stomatitis [Not Recovered/Not Resolved]
  - Candida infection [Unknown]
